FAERS Safety Report 4970794-5 (Version None)
Quarter: 2006Q2

REPORT INFORMATION
  Report Type: 
  Country: None (occurrence: None)
  Receive Date: 20060406
  Receipt Date: 20060317
  Transmission Date: 20061013
  Serious: Yes (Hospitalization)
  Sender: FDA-Public Use
  Company Number: US_0508120895

PATIENT
  Age: 24 Year
  Sex: Male
  Weight: 61.7 kg

DRUGS (3)
  1. ZYPREXA [Suspect]
     Indication: BIPOLAR DISORDER
     Dosage: 5 MG, EACH EVENING, ORAL
     Route: 048
     Dates: start: 19980428, end: 19990828
  2. ZYPREXA [Suspect]
     Indication: BIPOLAR DISORDER
     Dosage: 5 MG, EACH EVENING, ORAL
     Route: 048
     Dates: start: 20010621
  3. FOLIC ACID [Concomitant]

REACTIONS (15)
  - BLOOD TRIGLYCERIDES INCREASED [None]
  - CHOKING [None]
  - COMPUTERISED TOMOGRAM ABNORMAL [None]
  - CONVULSION [None]
  - DECREASED APPETITE [None]
  - DIABETES MELLITUS INSULIN-DEPENDENT [None]
  - ELECTROENCEPHALOGRAM ABNORMAL [None]
  - ENCEPHALOMALACIA [None]
  - GRAND MAL CONVULSION [None]
  - HYPOGLYCAEMIA [None]
  - MALAISE [None]
  - PROTHROMBIN TIME PROLONGED [None]
  - TONSILLITIS [None]
  - VENOUS THROMBOSIS [None]
  - WEIGHT DECREASED [None]
